FAERS Safety Report 8101774-9 (Version None)
Quarter: 2012Q1

REPORT INFORMATION
  Report Type: 
  Country: None (occurrence: None)
  Receive Date: 20120131
  Receipt Date: 20120123
  Transmission Date: 20120608
  Serious: Yes (Other)
  Sender: FDA-Public Use
  Company Number: PHHY2012ZA006457

PATIENT
  Sex: Female

DRUGS (1)
  1. ZOLEDRONOC ACID [Suspect]
     Dosage: 5 MG, YEARLY
     Route: 042
     Dates: start: 20100601

REACTIONS (5)
  - MALAISE [None]
  - PARATHYROID DISORDER [None]
  - BLOOD CALCIUM INCREASED [None]
  - CLOSTRIDIAL INFECTION [None]
  - VITAMIN D INCREASED [None]
